FAERS Safety Report 6218137-3 (Version None)
Quarter: 2009Q2

REPORT INFORMATION
  Report Type: 
  Country: None (occurrence: None)
  Receive Date: 20090608
  Receipt Date: 20090603
  Transmission Date: 20091009
  Serious: Yes (Death, Hospitalization, Other)
  Sender: FDA-Public Use
  Company Number: PHEH2009US05438

PATIENT
  Sex: Female
  Weight: 45 kg

DRUGS (14)
  1. EXJADE [Suspect]
     Indication: THALASSAEMIA BETA
     Dosage: 1000 MG, QD
     Dates: start: 20060101, end: 20080101
  2. LASIX [Concomitant]
  3. TYLENOL W/ CODEINE NO. 3 [Concomitant]
  4. XANAX [Concomitant]
  5. SYNTHROID [Concomitant]
  6. FOSAMAX [Concomitant]
  7. ARANESP [Concomitant]
  8. INSULIN [Concomitant]
  9. AMLODIPINE [Concomitant]
  10. FOLIC ACID [Concomitant]
  11. ALBUTEROL [Concomitant]
  12. IPRATROPIUM BROMIDE [Concomitant]
  13. ZOLOFT [Concomitant]
  14. PREMARIN [Concomitant]
     Dosage: UNK

REACTIONS (20)
  - ACIDOSIS [None]
  - ANOREXIA [None]
  - ANURIA [None]
  - AZOTAEMIA [None]
  - CELLULITIS [None]
  - CONJUNCTIVITIS [None]
  - DISEASE PROGRESSION [None]
  - EXTRAMEDULLARY HAEMOPOIESIS [None]
  - HYPERKALAEMIA [None]
  - HYPERPHOSPHATAEMIA [None]
  - HYPOPHAGIA [None]
  - LEUKOCYTOSIS [None]
  - MENTAL STATUS CHANGES [None]
  - PYREXIA [None]
  - RENAL FAILURE ACUTE [None]
  - RESPIRATORY FAILURE [None]
  - SINUSITIS [None]
  - TREATMENT NONCOMPLIANCE [None]
  - UPPER RESPIRATORY TRACT INFECTION [None]
  - URINE OUTPUT DECREASED [None]
